FAERS Safety Report 16408821 (Version 1)
Quarter: 2019Q2

REPORT INFORMATION
  Report Type: Spontaneous
  Country: FR (occurrence: FR)
  Receive Date: 20190610
  Receipt Date: 20190610
  Transmission Date: 20190711
  Serious: Yes (Death, Other)
  Sender: FDA-Public Use
  Company Number: FR-TEVA-2019-FR-1058141

PATIENT
  Age: 80 Year
  Sex: Male
  Weight: 67.6 kg

DRUGS (8)
  1. EUPRESSYL 30 MG, G?LULE [Interacting]
     Active Substance: URAPIDIL
     Indication: HYPERTENSION
     Dosage: 60 MILLIGRAM FOR EVERY 1 DAYS
     Route: 048
     Dates: end: 20181106
  2. ALLOPURINOL. [Concomitant]
     Active Substance: ALLOPURINOL
  3. GLIBENCLAMIDE [Concomitant]
     Active Substance: GLYBURIDE
     Route: 065
  4. KARDEGIC [Concomitant]
     Active Substance: ASPIRIN DL-LYSINE
     Route: 065
  5. EUCREAS 50 MG/1000 MG, COMPRIM? PELLICUL? [Concomitant]
     Active Substance: METFORMIN HYDROCHLORIDE\VILDAGLIPTIN
     Route: 065
  6. INDAPAMIDE. [Suspect]
     Active Substance: INDAPAMIDE
     Indication: HYPERTENSION
     Dosage: 1.5 MILLIGRAM FOR EVERY 1 DAY
     Route: 048
     Dates: end: 20181106
  7. BETAXOLOL BASE [Interacting]
     Active Substance: BETAXOLOL
     Indication: HYPERTENSION
     Route: 048
     Dates: end: 20181106
  8. DERMOVAL 0,05 POUR CENT, CR?ME [Concomitant]
     Route: 065

REACTIONS (3)
  - Drug interaction [Unknown]
  - Fall [Not Recovered/Not Resolved]
  - Hypotension [Not Recovered/Not Resolved]

NARRATIVE: CASE EVENT DATE: 201811
